FAERS Safety Report 7569399-1 (Version None)
Quarter: 2011Q2

REPORT INFORMATION
  Report Type: 
  Country: None (occurrence: None)
  Receive Date: 20110623
  Receipt Date: 20110620
  Transmission Date: 20111010
  Serious: Yes (Other)
  Sender: FDA-Public Use
  Company Number: US-ABBOTT-11P-163-0726843-00

PATIENT
  Sex: Female
  Weight: 105.06 kg

DRUGS (2)
  1. HUMIRA [Suspect]
     Indication: CROHN'S DISEASE
  2. HUMIRA [Suspect]
     Indication: PSORIASIS
     Dates: start: 20090101, end: 20100101

REACTIONS (5)
  - BLINDNESS [None]
  - DIABETES MELLITUS [None]
  - VISUAL IMPAIRMENT [None]
  - BLOOD GLUCOSE ABNORMAL [None]
  - PSORIASIS [None]
